FAERS Safety Report 13391401 (Version 2)
Quarter: 2017Q3

REPORT INFORMATION
  Report Type: Spontaneous
  Country: US (occurrence: US)
  Receive Date: 20170331
  Receipt Date: 20170818
  Transmission Date: 20171127
  Serious: No
  Sender: FDA-Public Use
  Company Number: US-TAKEDA-2017MPI002781

PATIENT
  Age: 93 Year
  Sex: Male
  Weight: 48.53 kg

DRUGS (1)
  1. NINLARO [Suspect]
     Active Substance: IXAZOMIB
     Indication: PLASMA CELL MYELOMA
     Dosage: 2.3 MG, UNK
     Route: 048
     Dates: start: 20170210

REACTIONS (2)
  - Rash pruritic [Unknown]
  - Fatigue [Unknown]

NARRATIVE: CASE EVENT DATE: 20170324
